FAERS Safety Report 25190004 (Version 1)
Quarter: 2025Q2

REPORT INFORMATION
  Report Type: Spontaneous
  Country: US (occurrence: US)
  Receive Date: 20250411
  Receipt Date: 20250411
  Transmission Date: 20250716
  Serious: Yes (Hospitalization, Other)
  Sender: BRISTOL MYERS SQUIBB
  Company Number: US-BRISTOL-MYERS SQUIBB COMPANY-2025-051424

PATIENT
  Age: 78 Year
  Sex: Male
  Weight: 72.57 kg

DRUGS (5)
  1. ELIQUIS [Suspect]
     Active Substance: APIXABAN
     Indication: Product used for unknown indication
  2. VYNDAMAX [Suspect]
     Active Substance: TAFAMIDIS
     Indication: Cardiac amyloidosis
     Dates: start: 202001
  3. CYMBALTA [Suspect]
     Active Substance: DULOXETINE HYDROCHLORIDE
     Indication: Neuropathy peripheral
  4. DIFLUNISAL [Suspect]
     Active Substance: DIFLUNISAL
     Indication: Product used for unknown indication
  5. GABAPENTIN [Suspect]
     Active Substance: GABAPENTIN
     Indication: Neuropathy peripheral

REACTIONS (8)
  - Neuropathy peripheral [Not Recovered/Not Resolved]
  - Pleural effusion [Unknown]
  - Cardiac failure [Not Recovered/Not Resolved]
  - Pneumothorax [Unknown]
  - Gastrointestinal amyloidosis [Unknown]
  - Hypersomnia [Unknown]
  - Renal injury [Unknown]
  - Procedural complication [Unknown]

NARRATIVE: CASE EVENT DATE: 20241201
